FAERS Safety Report 7019818-4 (Version None)
Quarter: 2010Q3

REPORT INFORMATION
  Report Type: 
  Country: None (occurrence: None)
  Receive Date: 20100929
  Receipt Date: 20100916
  Transmission Date: 20110219
  Serious: Yes (Hospitalization)
  Sender: FDA-Public Use
  Company Number: AU-ELI_LILLY_AND_COMPANY-AU201008005252

PATIENT
  Sex: Male

DRUGS (3)
  1. GEMCITABINE HCL [Suspect]
     Indication: PANCREATIC CARCINOMA
     Dosage: 1000 MG/M2, UNKNOWN
     Route: 065
     Dates: start: 20100730
  2. PACLITAXEL [Suspect]
     Indication: PANCREATIC CARCINOMA
     Dosage: 125 MG/M2, UNKNOWN
     Route: 065
     Dates: start: 20100730
  3. OXYCODONE [Concomitant]
     Indication: PAIN
     Dosage: 40 MG, UNKNOWN
     Route: 065
     Dates: start: 20100601

REACTIONS (2)
  - DIARRHOEA [None]
  - SEPTIC SHOCK [None]
